FAERS Safety Report 5254667-9 (Version None)
Quarter: 2007Q1

REPORT INFORMATION
  Report Type: 
  Country: None (occurrence: None)
  Receive Date: 20070302
  Receipt Date: 20070227
  Transmission Date: 20070707
  Serious: Yes (Other)
  Sender: FDA-Public Use
  Company Number: GR-PFIZER INC-2007015664

PATIENT
  Age: 65 Year
  Sex: Female

DRUGS (1)
  1. AROMASIN [Suspect]
     Indication: BREAST CANCER
     Route: 048
     Dates: start: 20070224, end: 20070225

REACTIONS (4)
  - DYSPNOEA [None]
  - FLUSHING [None]
  - PHARYNGEAL OEDEMA [None]
  - VOMITING [None]
